FAERS Safety Report 8371270 (Version 2)
Quarter: 2013Q1

REPORT INFORMATION
  Report Type: Report from Study
  Country: US (occurrence: US)
  Receive Date: 20120129
  Receipt Date: 20130129
  Transmission Date: 20140127
  Serious: No
  Sender: FDA-Public Use
  Company Number: US-ABBOTT-11P-163-0873993-00

PATIENT
  Age: 50 Year
  Sex: Female

DRUGS (4)
  1. HUMIRA 40 MG/0.8 ML PEN [Suspect]
     Indication: CROHN^S DISEASE
     Dosage: DAY 1
     Dates: start: 20111013
  2. HUMIRA 40 MG/0.8 ML PEN [Suspect]
     Dosage: DAY 15
  3. HUMIRA 40 MG/0.8 ML PEN [Suspect]
     Dates: start: 20111013
  4. ASACOL [Concomitant]
     Indication: CROHN^S DISEASE
     Dosage: HD 800 MG 6 PILLS QD

REACTIONS (5)
  - Injection site pain [Not Recovered/Not Resolved]
  - Injection site pain [Recovered/Resolved]
  - Device malfunction [Unknown]
  - Incorrect dose administered [Unknown]
  - Injection site pain [Recovered/Resolved]
